FAERS Safety Report 16378635 (Version 1)
Quarter: 2019Q2

REPORT INFORMATION
  Report Type: Report from Study
  Country: US (occurrence: US)
  Receive Date: 20190531
  Receipt Date: 20190531
  Transmission Date: 20190711
  Serious: Yes (Life-Threatening, Other)
  Sender: FDA-Public Use
  Company Number: PHEH2019US022634

PATIENT
  Sex: Female

DRUGS (1)
  1. JADENU [Suspect]
     Active Substance: DEFERASIROX
     Indication: PRODUCT USED FOR UNKNOWN INDICATION
     Dosage: 360 MG, BID
     Route: 065

REACTIONS (13)
  - Fatigue [Unknown]
  - Depression [Unknown]
  - Jaundice [Unknown]
  - Anaemia [Unknown]
  - Abortion [Unknown]
  - Blood iron increased [Unknown]
  - Sickle cell disease [Unknown]
  - Nasopharyngitis [Unknown]
  - Peripheral swelling [Unknown]
  - Post-traumatic stress disorder [Unknown]
  - Suicide attempt [Unknown]
  - Pain [Not Recovered/Not Resolved]
  - Anxiety [Unknown]
